FAERS Safety Report 13158287 (Version 1)
Quarter: 2017Q1

REPORT INFORMATION
  Report Type: Spontaneous
  Country: SN (occurrence: SN)
  Receive Date: 20170127
  Receipt Date: 20170127
  Transmission Date: 20170428
  Serious: Yes (Other)
  Sender: FDA-Public Use
  Company Number: SN-PFIZER INC-2017035896

PATIENT
  Age: 40 Year
  Sex: Female
  Weight: 77.5 kg

DRUGS (1)
  1. ARTOTEC [Suspect]
     Active Substance: DICLOFENAC SODIUM\MISOPROSTOL
     Indication: ARTHRALGIA
     Dosage: 75MG/0,2 MG, 2X/DAY

REACTIONS (1)
  - Haemorrhage [Unknown]
